FAERS Safety Report 24118987 (Version 1)
Quarter: 2024Q3

REPORT INFORMATION
  Report Type: Spontaneous
  Country: NL (occurrence: NL)
  Receive Date: 20240722
  Receipt Date: 20240722
  Transmission Date: 20241016
  Serious: Yes (Hospitalization)
  Sender: ACCORD
  Company Number: None

PATIENT
  Age: 85 Year
  Sex: Female

DRUGS (4)
  1. METOPROLOL [Suspect]
     Active Substance: METOPROLOL
     Indication: Left ventricular dysfunction
     Dosage: 1DD 50 MG
     Dates: start: 20240328
  2. FUROSEMIDE [Suspect]
     Active Substance: FUROSEMIDE
     Indication: Left ventricular dysfunction
     Dosage: 40MG, 1DD
     Dates: start: 20240328
  3. PERINDOPRIL [Suspect]
     Active Substance: PERINDOPRIL
     Indication: Left ventricular dysfunction
     Dosage: 1DD 2 MG
     Dates: start: 20240328
  4. APIXABAN [Concomitant]
     Active Substance: APIXABAN
     Dosage: TABLET, 2.5 MG (MILLIGRAM)

REACTIONS (3)
  - Fall [Unknown]
  - Orthostatic hypotension [Unknown]
  - Soft tissue injury [Unknown]
